FAERS Safety Report 10299046 (Version 1)
Quarter: 2014Q3

REPORT INFORMATION
  Report Type: Spontaneous
  Country: US (occurrence: US)
  Receive Date: 20140711
  Receipt Date: 20140711
  Transmission Date: 20150326
  Serious: Yes (Other)
  Sender: FDA-Public Use
  Company Number: US-ACTAVIS-2014-14974

PATIENT
  Age: 10 Month
  Sex: Male

DRUGS (1)
  1. NICOTINE (WATSON LABORATORIES) [Suspect]
     Active Substance: NICOTINE
     Indication: ACCIDENTAL EXPOSURE TO PRODUCT BY CHILD
     Dosage: ^SMALL AMOUNT^ OF 18 % (18 MG/ML) SOLUTION
     Route: 048

REACTIONS (6)
  - Vomiting [Recovered/Resolved]
  - Accidental exposure to product by child [Recovered/Resolved]
  - Grunting [None]
  - Cerebellar ataxia [Recovered/Resolved]
  - Tachycardia [Recovered/Resolved]
  - Tobacco poisoning [Recovered/Resolved]
